FAERS Safety Report 22897693 (Version 5)
Quarter: 2024Q2

REPORT INFORMATION
  Report Type: Report from Study
  Country: CA (occurrence: CA)
  Receive Date: 20230902
  Receipt Date: 20240422
  Transmission Date: 20240716
  Serious: Yes (Death, Hospitalization, Other)
  Sender: FDA-Public Use
  Company Number: CA-SANDOZ-SDZ2023CA019229

PATIENT
  Sex: Female

DRUGS (2)
  1. HYRIMOZ [Suspect]
     Active Substance: ADALIMUMAB-ADAZ
     Indication: Rheumatoid arthritis
     Dosage: 40 MG (PREFILLED PEN)
     Route: 058
     Dates: start: 20211210
  2. METHOTREXATE [Suspect]
     Active Substance: METHOTREXATE
     Indication: Product used for unknown indication
     Dosage: UNK
     Route: 065

REACTIONS (13)
  - Death [Fatal]
  - Mobility decreased [Unknown]
  - Back pain [Unknown]
  - Sciatic nerve neuropathy [Unknown]
  - Pain [Unknown]
  - Hospitalisation [Unknown]
  - Fall [Unknown]
  - Asthenia [Unknown]
  - Balance disorder [Unknown]
  - General physical health deterioration [Unknown]
  - Peripheral swelling [Recovering/Resolving]
  - Diarrhoea [Recovered/Resolved]
  - Vomiting [Unknown]
